FAERS Safety Report 6290763-5 (Version None)
Quarter: 2009Q3

REPORT INFORMATION
  Report Type: 
  Country: None (occurrence: None)
  Receive Date: 20090730
  Receipt Date: 20090722
  Transmission Date: 20100115
  Serious: Yes (Other)
  Sender: FDA-Public Use
  Company Number: PHHY2009CA19658

PATIENT
  Sex: Female

DRUGS (14)
  1. SANDOSTATIN LAR [Suspect]
     Indication: CARCINOID TUMOUR
     Dosage: 20 MG, QMO
     Route: 030
     Dates: start: 20071201
  2. SANDOSTATIN LAR [Suspect]
     Dosage: 30 MG, QMO
     Dates: start: 20080101
  3. SANDOSTATIN LAR [Suspect]
     Dosage: 20 MG, QMO
  4. MS CONTIN [Concomitant]
     Dosage: 75 BID
     Route: 065
  5. FUROSEMIDE [Concomitant]
     Dosage: 2 BID
     Route: 065
  6. RITALIN [Concomitant]
     Dosage: 10 QD
     Route: 065
  7. SYNTHROID [Concomitant]
     Dosage: 01 QD
     Route: 065
  8. LIPITOR [Concomitant]
     Dosage: 10 QD
     Route: 065
  9. ATENOLOL [Concomitant]
     Dosage: 50 QD
     Route: 065
  10. PAXIL [Concomitant]
     Dosage: 30 QD
     Route: 065
  11. COLACE [Concomitant]
     Dosage: 100 2 BID
     Route: 065
  12. NITROGLYCERIN [Concomitant]
     Dosage: PRN
     Route: 065
  13. ASPIRIN [Concomitant]
     Dosage: 80 QD
     Route: 065
  14. INDAPAMIDE [Concomitant]
     Dosage: QD
     Route: 065

REACTIONS (4)
  - ABDOMINAL PAIN UPPER [None]
  - EYE HAEMORRHAGE [None]
  - MALIGNANT NEOPLASM PROGRESSION [None]
  - PAIN [None]
